FAERS Safety Report 5107662-4 (Version None)
Quarter: 2006Q3

REPORT INFORMATION
  Report Type: 
  Country: None (occurrence: None)
  Receive Date: 20060914
  Receipt Date: 20060911
  Transmission Date: 20061208
  Serious: Yes (Death, Hospitalization)
  Sender: FDA-Public Use
  Company Number: DAV-AE-MTX-06-002

PATIENT
  Age: 75 Year
  Sex: Male

DRUGS (8)
  1. METHOTREXATE [Suspect]
     Dosage: 10 MG - 1XW - PO
     Route: 048
     Dates: end: 20050104
  2. OMEPRAZOLE [Concomitant]
  3. DICLOFENAC [Concomitant]
  4. FOLIC ACID [Concomitant]
  5. PREDNISOLONE [Concomitant]
  6. ATORVASTATIN [Concomitant]
  7. PERINDOPRIL ERBUMINE [Concomitant]
  8. LEFLUNOMIDE [Concomitant]

REACTIONS (6)
  - ACUTE MYOCARDIAL INFARCTION [None]
  - ALVEOLITIS [None]
  - CARDIOGENIC SHOCK [None]
  - DYSPNOEA [None]
  - INFECTION [None]
  - PNEUMONITIS [None]
